FAERS Safety Report 4712021-X (Version None)
Quarter: 2005Q3

REPORT INFORMATION
  Report Type: 
  Country: None (occurrence: None)
  Receive Date: 20050711
  Receipt Date: 20050711
  Transmission Date: 20060218
  Serious: Yes (Other)
  Sender: FDA-Public Use
  Company Number: None

PATIENT
  Age: 53 Year
  Sex: Female

DRUGS (1)
  1. BUPROPION    150 MG SR TA    WATSON [Suspect]
     Indication: DEPRESSION
     Dosage: 1 TABLET   BID   ORAL
     Route: 048
     Dates: start: 20050622, end: 20050704

REACTIONS (2)
  - FORMICATION [None]
  - THERAPEUTIC RESPONSE UNEXPECTED WITH DRUG SUBSTITUTION [None]
